FAERS Safety Report 16471996 (Version 3)
Quarter: 2019Q3

REPORT INFORMATION
  Report Type: Spontaneous
  Country: JP (occurrence: JP)
  Receive Date: 20190625
  Receipt Date: 20190904
  Transmission Date: 20191004
  Serious: Yes (Hospitalization, Other)
  Sender: FDA-Public Use
  Company Number: JP-ROCHE-2342882

PATIENT
  Age: 82 Year
  Sex: Female
  Weight: 40 kg

DRUGS (3)
  1. TREAKISYM [Concomitant]
     Active Substance: BENDAMUSTINE HYDROCHLORIDE
     Indication: B-CELL LYMPHOMA
     Dosage: DOSAGE IS UNCERTAIN
     Route: 041
     Dates: start: 20190612, end: 20190613
  2. GAZYVA [Suspect]
     Active Substance: OBINUTUZUMAB
     Indication: B-CELL LYMPHOMA
     Dosage: DOSAGE IS UNCERTAIN
     Route: 041
     Dates: start: 2019, end: 20190612
  3. GAZYVA [Suspect]
     Active Substance: OBINUTUZUMAB
     Dosage: DOSAGE IS UNCERTAIN
     Route: 041
     Dates: start: 20190424, end: 20190611

REACTIONS (5)
  - Melaena [Recovering/Resolving]
  - Blood pressure decreased [Recovering/Resolving]
  - Gastrointestinal haemorrhage [Recovered/Resolved]
  - Infusion related reaction [Recovered/Resolved]
  - Shock [Recovered/Resolved]

NARRATIVE: CASE EVENT DATE: 20190424
